FAERS Safety Report 20487357 (Version 1)
Quarter: 2022Q1

REPORT INFORMATION
  Report Type: Spontaneous
  Country: US (occurrence: US)
  Receive Date: 20220218
  Receipt Date: 20220218
  Transmission Date: 20220424
  Serious: No
  Sender: FDA-Public Use
  Company Number: US-SANOFI-00969721

PATIENT
  Age: 84 Year
  Sex: Male

DRUGS (1)
  1. TOUJEO [Suspect]
     Active Substance: INSULIN GLARGINE
     Indication: Diabetic nephropathy
     Dosage: 12 U, BID
     Route: 058

REACTIONS (2)
  - Hypoacusis [Not Recovered/Not Resolved]
  - Product use issue [Unknown]
